FAERS Safety Report 11213250 (Version 1)
Quarter: 2015Q2

REPORT INFORMATION
  Report Type: Spontaneous
  Country: FR (occurrence: FR)
  Receive Date: 20150623
  Receipt Date: 20150623
  Transmission Date: 20150821
  Serious: Yes (Other)
  Sender: FDA-Public Use
  Company Number: FR-GLAXOSMITHKLINE-FR2015GSK086655

PATIENT
  Age: 10 Month
  Sex: Female
  Weight: 5 kg

DRUGS (5)
  1. RIVOTRIL [Concomitant]
     Active Substance: CLONAZEPAM
     Indication: FEBRILE CONVULSION
     Dosage: UNK
     Dates: start: 20150505
  2. ZOVIRAX [Suspect]
     Active Substance: ACYCLOVIR
     Indication: PRODUCT USED FOR UNKNOWN INDICATION
     Dosage: 20 MG/KG, TID
     Route: 042
     Dates: start: 20150505, end: 20150506
  3. CEFOTAXIME [Suspect]
     Active Substance: CEFOTAXIME\CEFOTAXIME SODIUM
     Indication: PRODUCT USED FOR UNKNOWN INDICATION
     Dosage: 100 MG/KG, Z
     Route: 042
     Dates: start: 20150505, end: 20150509
  4. VALIUM [Concomitant]
     Active Substance: DIAZEPAM
     Indication: FEBRILE CONVULSION
     Dosage: UNK
     Route: 054
     Dates: start: 20150505, end: 20150505
  5. VANCOMYCIN [Concomitant]
     Active Substance: VANCOMYCIN
     Dosage: UNK
     Dates: start: 20150505, end: 20150506

REACTIONS (2)
  - Skin necrosis [Recovered/Resolved]
  - Injection site extravasation [Recovered/Resolved]

NARRATIVE: CASE EVENT DATE: 20150506
